FAERS Safety Report 10654822 (Version 1)
Quarter: 2014Q4

REPORT INFORMATION
  Report Type: Spontaneous
  Country: US (occurrence: None)
  Receive Date: 20141215
  Receipt Date: 20141215
  Transmission Date: 20150529
  Serious: No
  Sender: FDA-Public Use
  Company Number: None

PATIENT
  Age: 39 Year
  Sex: Female

DRUGS (7)
  1. DULOXETINE HCL [Suspect]
     Active Substance: DULOXETINE HYDROCHLORIDE
     Indication: DEPRESSION
     Dosage: 1 PILL A DAY ONCE DAILY TAKEN BY MOUTH
     Route: 048
  2. DULOXETINE HCL [Suspect]
     Active Substance: DULOXETINE HYDROCHLORIDE
     Indication: AFFECTIVE DISORDER
     Dosage: 1 PILL A DAY ONCE DAILY TAKEN BY MOUTH
     Route: 048
  3. PROZAC [Suspect]
     Active Substance: FLUOXETINE HYDROCHLORIDE
     Indication: DEPRESSION
     Dosage: 20MG X2 ONCE DAILY TAKEN BY MOUTH
  4. PROZAC [Suspect]
     Active Substance: FLUOXETINE HYDROCHLORIDE
     Indication: GENERALISED ANXIETY DISORDER
     Dosage: 20MG X2 ONCE DAILY TAKEN BY MOUTH
  5. DULOXETINE HCL [Suspect]
     Active Substance: DULOXETINE HYDROCHLORIDE
     Indication: GENERALISED ANXIETY DISORDER
     Dosage: 1 PILL A DAY ONCE DAILY TAKEN BY MOUTH
     Route: 048
  6. PROZAC [Suspect]
     Active Substance: FLUOXETINE HYDROCHLORIDE
     Indication: AFFECTIVE DISORDER
     Dosage: 20MG X2 ONCE DAILY TAKEN BY MOUTH
  7. DULOXETINE HCL [Suspect]
     Active Substance: DULOXETINE HYDROCHLORIDE
     Dosage: 1 PILL A DAY ONCE DAILY TAKEN BY MOUTH
     Route: 048

REACTIONS (10)
  - Panic attack [None]
  - Depression [None]
  - Anger [None]
  - Condition aggravated [None]
  - Product substitution issue [None]
  - Product quality issue [None]
  - Back pain [None]
  - Somnolence [None]
  - Dyspnoea [None]
  - Irritability [None]

NARRATIVE: CASE EVENT DATE: 20140911
